FAERS Safety Report 7980457-X (Version None)
Quarter: 2011Q4

REPORT INFORMATION
  Report Type: 
  Country: None (occurrence: None)
  Receive Date: 20111214
  Receipt Date: 20111209
  Transmission Date: 20120403
  Serious: Yes (Other)
  Sender: FDA-Public Use
  Company Number: US-GLAXOSMITHKLINE-A0947015A

PATIENT
  Age: 90 Year
  Sex: Female

DRUGS (5)
  1. HERCEPTIN [Concomitant]
  2. TYKERB [Suspect]
     Indication: BREAST CANCER
     Dosage: 1000MG PER DAY
     Route: 048
     Dates: start: 20110801, end: 20111007
  3. LISINOPRIL [Concomitant]
  4. VICODIN [Concomitant]
  5. ASPIRIN [Concomitant]

REACTIONS (8)
  - DIZZINESS [None]
  - URTICARIA [None]
  - SYNCOPE [None]
  - FATIGUE [None]
  - BLISTER [None]
  - RASH [None]
  - METASTASES TO SKIN [None]
  - MUSCLE SPASMS [None]
